FAERS Safety Report 9403142 (Version 1)
Quarter: 2013Q3

REPORT INFORMATION
  Report Type: Spontaneous
  Country: US (occurrence: None)
  Receive Date: 20130712
  Receipt Date: 20130712
  Transmission Date: 20140515
  Serious: Yes (Other)
  Sender: FDA-Public Use
  Company Number: 2013060172

PATIENT
  Age: 62 Year
  Sex: Male

DRUGS (1)
  1. D-PENICILLAMINE [Suspect]
     Indication: CYSTINURIA
     Route: 048

REACTIONS (11)
  - Toxicity to various agents [None]
  - Cutis laxa [None]
  - Renal failure acute [None]
  - Renal cyst [None]
  - Pancreatic cyst [None]
  - Restrictive cardiomyopathy [None]
  - Restrictive pulmonary disease [None]
  - Dysphagia [None]
  - Elastosis perforans [None]
  - Telangiectasia [None]
  - Urinary sediment present [None]
